FAERS Safety Report 8083590-X (Version None)
Quarter: 2012Q1

REPORT INFORMATION
  Report Type: 
  Country: None (occurrence: None)
  Receive Date: 20120127
  Receipt Date: 20110127
  Transmission Date: 20120608
  Serious: No
  Sender: FDA-Public Use
  Company Number: US-ABBOTT-11P-163-0700988-00

PATIENT
  Age: 61 Year
  Sex: Male

DRUGS (3)
  1. PENTASA [Concomitant]
     Indication: CROHN'S DISEASE
     Dosage: DAILY
  2. IMODIUM [Concomitant]
     Indication: DIARRHOEA
     Dosage: DAILY
  3. HUMIRA [Suspect]
     Indication: CROHN'S DISEASE
     Dates: start: 20100525

REACTIONS (1)
  - INJECTION SITE HAEMATOMA [None]
